FAERS Safety Report 15305307 (Version 1)
Quarter: 2018Q3

REPORT INFORMATION
  Report Type: Spontaneous
  Country: PR (occurrence: PR)
  Receive Date: 20180810
  Receipt Date: 20180810
  Transmission Date: 20181010
  Serious: Yes (Other)
  Sender: FDA-Public Use
  Company Number: None

PATIENT
  Age: 46 Year
  Sex: Female
  Weight: 60 kg

DRUGS (2)
  1. OPTIMARK [Suspect]
     Active Substance: GADOVERSETAMIDE
     Indication: SWELLING
     Route: 042
     Dates: start: 20180809, end: 20180809
  2. OPTIMARK [Suspect]
     Active Substance: GADOVERSETAMIDE
     Indication: MASS
     Route: 042
     Dates: start: 20180809, end: 20180809

REACTIONS (2)
  - Feeling hot [None]
  - Dyspnoea [None]

NARRATIVE: CASE EVENT DATE: 20180809
